FAERS Safety Report 17344136 (Version 1)
Quarter: 2020Q1

REPORT INFORMATION
  Report Type: Spontaneous
  Country: US (occurrence: US)
  Receive Date: 20200129
  Receipt Date: 20200129
  Transmission Date: 20200409
  Serious: No
  Sender: FDA-Public Use
  Company Number: US-ALLERGAN-1927510US

PATIENT
  Sex: Female

DRUGS (5)
  1. BOTOX COSMETIC [Suspect]
     Active Substance: ONABOTULINUMTOXINA
     Indication: SKIN WRINKLING
     Dosage: UNK, SINGLE
     Dates: start: 20190208, end: 20190208
  2. BOTOX COSMETIC [Suspect]
     Active Substance: ONABOTULINUMTOXINA
     Indication: SKIN WRINKLING
     Dosage: UNK, SINGLE
     Dates: start: 20190208, end: 20190208
  3. BOTOX COSMETIC [Suspect]
     Active Substance: ONABOTULINUMTOXINA
     Indication: SKIN WRINKLING
     Dosage: UNK, SINGLE
     Dates: start: 20190208, end: 20190208
  4. BOTOX COSMETIC [Suspect]
     Active Substance: ONABOTULINUMTOXINA
     Dosage: UNK
     Dates: start: 20180730, end: 20180730
  5. RETIN A TOPICAL GEL 0,06% [Concomitant]
     Indication: ACNE
     Dosage: UNK
     Route: 061

REACTIONS (6)
  - Nausea [Unknown]
  - Vomiting [Recovered/Resolved]
  - Deafness transitory [Recovering/Resolving]
  - Vertigo [Recovered/Resolved]
  - Headache [Unknown]
  - Ear infection viral [Recovered/Resolved]

NARRATIVE: CASE EVENT DATE: 2019
